FAERS Safety Report 4335824-2 (Version None)
Quarter: 2004Q2

REPORT INFORMATION
  Report Type: 
  Country: None (occurrence: None)
  Receive Date: 20040405
  Receipt Date: 20021127
  Transmission Date: 20050107
  Serious: Yes (Life-Threatening, Hospitalization)
  Sender: FDA-Public Use
  Company Number: 2002IC000335

PATIENT
  Age: 75 Year
  Sex: Male

DRUGS (11)
  1. FLUOROURACIL [Suspect]
     Indication: HEPATIC NEOPLASM MALIGNANT
     Dosage: 250 MG; INTRA-ARTERIAL
     Route: 013
     Dates: start: 20020805, end: 20020809
  2. FLUOROURACIL [Suspect]
     Indication: HEPATIC NEOPLASM MALIGNANT
     Dosage: 250 MG; INTRA-ARTERIAL
     Route: 013
     Dates: start: 20020812, end: 20020815
  3. CISPLATIN [Suspect]
     Indication: HEPATIC NEOPLASM MALIGNANT
     Dosage: 10 MG; INTRA-ARTERIAL
     Route: 013
     Dates: start: 20020805, end: 20020809
  4. CISPLATIN [Suspect]
     Indication: HEPATIC NEOPLASM MALIGNANT
     Dosage: 10 MG; INTRA-ARTERIAL
     Route: 013
     Dates: start: 20020812, end: 20020815
  5. ESTAZOLAM [Concomitant]
  6. BAYMYCARD [Concomitant]
  7. URSO [Concomitant]
  8. GASMOTIN [Concomitant]
  9. ACINON [Concomitant]
  10. MARZULENE S [Concomitant]
  11. SEROTONE [Concomitant]

REACTIONS (24)
  - AGRANULOCYTOSIS [None]
  - ANOREXIA [None]
  - BACILLUS INFECTION [None]
  - BONE MARROW DEPRESSION [None]
  - DEHYDRATION [None]
  - DIARRHOEA [None]
  - DISSEMINATED INTRAVASCULAR COAGULATION [None]
  - ENTEROCOLITIS [None]
  - FAECES DISCOLOURED [None]
  - GASTRITIS EROSIVE [None]
  - GASTRODUODENAL ULCER [None]
  - GASTROINTESTINAL HAEMORRHAGE [None]
  - GENERALISED OEDEMA [None]
  - HISTIOCYTOSIS HAEMATOPHAGIC [None]
  - HYPOALBUMINAEMIA [None]
  - MOUTH HAEMORRHAGE [None]
  - MOUTH ULCERATION [None]
  - PLATELET COUNT DECREASED [None]
  - PROTHROMBIN TIME SHORTENED [None]
  - PULMONARY OEDEMA [None]
  - PYREXIA [None]
  - SEPSIS [None]
  - STAPHYLOCOCCAL INFECTION [None]
  - SYSTEMIC CANDIDA [None]
